FAERS Safety Report 16885471 (Version 2)
Quarter: 2019Q4

REPORT INFORMATION
  Report Type: Spontaneous
  Country: NZ (occurrence: NZ)
  Receive Date: 20191004
  Receipt Date: 20191216
  Transmission Date: 20200122
  Serious: Yes (Hospitalization)
  Sender: FDA-Public Use
  Company Number: NZ-ELI_LILLY_AND_COMPANY-NZ201909011637

PATIENT
  Age: 41 Year

DRUGS (1)
  1. ZYPREXA RELPREVV [Suspect]
     Active Substance: OLANZAPINE PAMOATE
     Indication: PRODUCT USED FOR UNKNOWN INDICATION
     Dosage: 405 MG, EACH 4 WEEKS
     Route: 030

REACTIONS (8)
  - Muscular weakness [Recovered/Resolved]
  - Post-injection delirium sedation syndrome [Recovered/Resolved]
  - Heart rate increased [Recovered/Resolved]
  - Grimacing [Recovered/Resolved]
  - Diabetes mellitus inadequate control [Unknown]
  - Muscle twitching [Recovered/Resolved]
  - Loss of consciousness [Recovered/Resolved]
  - Heart rate irregular [Recovered/Resolved]

NARRATIVE: CASE EVENT DATE: 20190920
